FAERS Safety Report 8934853 (Version 1)
Quarter: 2012Q4

REPORT INFORMATION
  Report Type: Report from Study
  Country: US (occurrence: US)
  Receive Date: 20121129
  Receipt Date: 20121129
  Transmission Date: 20130627
  Serious: Yes (Death, Other)
  Sender: FDA-Public Use
  Company Number: US-BAXTER-2012BAX024815

PATIENT
  Age: 87 Year
  Sex: Female

DRUGS (2)
  1. GAMMAGARD LIQUID [Suspect]
     Indication: NON-HODGKIN^S LYMPHOMA
     Route: 042
  2. GAMMAGARD LIQUID [Suspect]
     Route: 042
     Dates: start: 20090309

REACTIONS (4)
  - Cardiac failure [Fatal]
  - Ventricular extrasystoles [Unknown]
  - Cardiac failure congestive [Unknown]
  - Renal failure [Unknown]
